FAERS Safety Report 22066618 (Version 1)
Quarter: 2023Q1

REPORT INFORMATION
  Report Type: Spontaneous
  Country: US (occurrence: None)
  Receive Date: 20230306
  Receipt Date: 20230306
  Transmission Date: 20230417
  Serious: No
  Sender: FDA-Public Use
  Company Number: None

PATIENT
  Sex: Male

DRUGS (2)
  1. CYCLOSPORINE [Suspect]
     Active Substance: CYCLOSPORINE
     Indication: Renal transplant
     Dosage: 25 MG ORAL??TAKE 1 CAPSULE BY MOUTH ONCE EVERY DAY
     Route: 048
     Dates: start: 20181211
  2. MYCOPHENOLIC DR TAB [Concomitant]

REACTIONS (1)
  - Blood sodium decreased [None]
